FAERS Safety Report 9348096 (Version 2)
Quarter: 2013Q3

REPORT INFORMATION
  Report Type: Report from Study
  Country: US (occurrence: US)
  Receive Date: 20130614
  Receipt Date: 20130913
  Transmission Date: 20140515
  Serious: Yes (Other)
  Sender: FDA-Public Use
  Company Number: US-ROCHE-1207806

PATIENT
  Age: 76 Year
  Sex: Female

DRUGS (3)
  1. ERIVEDGE [Suspect]
     Indication: NEOPLASM MALIGNANT
     Route: 065
     Dates: start: 20130305, end: 20130330
  2. METHOTREXATE [Concomitant]
  3. STELARA [Concomitant]
     Route: 065

REACTIONS (1)
  - Drug reaction with eosinophilia and systemic symptoms [Recovered/Resolved with Sequelae]
